FAERS Safety Report 5590315-6 (Version None)
Quarter: 2008Q1

REPORT INFORMATION
  Report Type: 
  Country: None (occurrence: None)
  Receive Date: 20080109
  Receipt Date: 20071231
  Transmission Date: 20080703
  Serious: Yes (Hospitalization, Other)
  Sender: FDA-Public Use
  Company Number: 2008000040

PATIENT
  Age: 20 Year
  Sex: Female

DRUGS (1)
  1. VISINE EYE DROPS [Suspect]
     Dosage: TEN BOTTLES ONCE, ORAL
     Route: 048
     Dates: start: 20071229, end: 20071229

REACTIONS (11)
  - ACCIDENTAL EXPOSURE [None]
  - BRADYCARDIA [None]
  - CHEST PAIN [None]
  - DIARRHOEA [None]
  - DIZZINESS [None]
  - DYSPNOEA [None]
  - DYSSTASIA [None]
  - MUSCLE TWITCHING [None]
  - NAUSEA [None]
  - PARAESTHESIA [None]
  - VOMITING [None]
